FAERS Safety Report 5019606-4 (Version None)
Quarter: 2006Q2

REPORT INFORMATION
  Report Type: 
  Country: None (occurrence: None)
  Receive Date: 20060601
  Receipt Date: 20060519
  Transmission Date: 20061013
  Serious: Yes (Hospitalization, Other)
  Sender: FDA-Public Use
  Company Number: 2006034300

PATIENT
  Age: 38 Year
  Sex: Male

DRUGS (2)
  1. LYRICA [Suspect]
     Indication: ILL-DEFINED DISORDER
  2. LUNESTA [Suspect]
     Indication: ILL-DEFINED DISORDER

REACTIONS (3)
  - BRAIN DEATH [None]
  - CONTRAINDICATION TO MEDICAL TREATMENT [None]
  - RESPIRATORY DEPRESSION [None]
